FAERS Safety Report 9753051 (Version 1)
Quarter: 2013Q4

REPORT INFORMATION
  Report Type: Spontaneous
  Country: US (occurrence: US)
  Receive Date: 20131213
  Receipt Date: 20131213
  Transmission Date: 20140711
  Serious: Yes (Other)
  Sender: FDA-Public Use
  Company Number: US-BAYER-2013-151223

PATIENT
  Age: 22 Year
  Sex: Female

DRUGS (8)
  1. YASMIN [Suspect]
     Route: 048
  2. YAZ [Suspect]
     Route: 048
  3. OCELLA [Suspect]
     Route: 048
  4. FLUOXETINE [Concomitant]
     Dosage: 40 MG, UNK
  5. GEODON [Concomitant]
     Dosage: 40 MG, UNK
  6. PREVACID [Concomitant]
     Dosage: 15 MG, UNK
  7. HYDROCODONE [Concomitant]
  8. OXYCODONE [Concomitant]

REACTIONS (1)
  - Gallbladder operation [None]
